FAERS Safety Report 4283278-7 (Version None)
Quarter: 2004Q1

REPORT INFORMATION
  Report Type: 
  Country: None (occurrence: None)
  Receive Date: 20040129
  Receipt Date: 20040119
  Transmission Date: 20041129
  Serious: Yes (Hospitalization)
  Sender: FDA-Public Use
  Company Number: 2003CG01641

PATIENT
  Age: 6 Year
  Sex: Female

DRUGS (5)
  1. FOSCAVIR [Suspect]
     Indication: PROPHYLAXIS
     Dosage: 1300 MG TIWK IV
     Route: 042
     Dates: start: 20031014, end: 20031112
  2. SPORANOX [Suspect]
     Dates: end: 20031101
  3. FUNGIZONE [Suspect]
     Dates: end: 20031112
  4. LORATADINE [Suspect]
     Dates: end: 20031112
  5. URSOLVAN-200 [Suspect]
     Dates: end: 20031112

REACTIONS (6)
  - ATAXIA [None]
  - COORDINATION ABNORMAL [None]
  - HEMIPARESIS [None]
  - LUNG INFECTION [None]
  - SOMNOLENCE [None]
  - VISUAL FIELD DEFECT [None]
